FAERS Safety Report 7423509-5 (Version None)
Quarter: 2011Q2

REPORT INFORMATION
  Report Type: 
  Country: None (occurrence: None)
  Receive Date: 20110419
  Receipt Date: 20110315
  Transmission Date: 20111010
  Serious: Yes (Hospitalization)
  Sender: FDA-Public Use
  Company Number: US-BAYER-201029721NA

PATIENT
  Age: 46 Year
  Sex: Female
  Weight: 78.912 kg

DRUGS (4)
  1. ZYRTEC [Concomitant]
     Dosage: UNK
     Dates: start: 20080311
  2. YAZ [Suspect]
     Indication: PREMENSTRUAL SYNDROME
  3. YAZ [Suspect]
     Indication: MENOPAUSE
     Dosage: SAMPLES, 2006, 3 PACKS; QD
     Route: 048
     Dates: start: 20071102, end: 20080725
  4. LEVOTHYROXINE SODIUM [Concomitant]
     Indication: THYROID DISORDER
     Dosage: 50 ?G/D, QD
     Dates: start: 20070801

REACTIONS (2)
  - DEEP VEIN THROMBOSIS [None]
  - THROMBOPHLEBITIS SUPERFICIAL [None]
